FAERS Safety Report 8988355 (Version 4)
Quarter: 2013Q2

REPORT INFORMATION
  Report Type: Spontaneous
  Country: JP (occurrence: None)
  Receive Date: 20121218
  Receipt Date: 20130529
  Transmission Date: 20140414
  Serious: Yes (Hospitalization, Other)
  Sender: FDA-Public Use
  Company Number: ENT 2012-0178

PATIENT
  Age: 66 Year
  Sex: Female

DRUGS (1)
  1. COMTAN [Suspect]
     Indication: PARKINSON^S DISEASE
     Route: 048
     Dates: start: 20110408, end: 20121204

REACTIONS (7)
  - Hallucination [None]
  - Infection [None]
  - Haemoglobin decreased [None]
  - Red blood cell count decreased [None]
  - White blood cell count decreased [None]
  - Pneumonia aspiration [None]
  - Haematocrit decreased [None]
